FAERS Safety Report 9152235 (Version 3)
Quarter: 2013Q1

REPORT INFORMATION
  Report Type: Spontaneous
  Country: US (occurrence: US)
  Receive Date: 20130308
  Receipt Date: 20130326
  Transmission Date: 20140127
  Serious: Yes (Life-Threatening, Hospitalization)
  Sender: FDA-Public Use
  Company Number: US-ASTRAZENECA-2013SE14365

PATIENT
  Age: 52 Day
  Sex: Female
  Weight: 3.7 kg

DRUGS (5)
  1. SYNAGIS [Suspect]
     Indication: ANTIVIRAL PROPHYLAXIS
     Dosage: 15MG/KG Q MONTH
     Route: 030
     Dates: start: 20130113
  2. SYNAGIS [Suspect]
     Indication: PREMATURE BABY
     Dosage: 15MG/KG Q MONTH
     Route: 030
     Dates: start: 20130113
  3. SYNAGIS [Suspect]
     Indication: ANTIVIRAL PROPHYLAXIS
     Route: 030
     Dates: start: 20130227
  4. SYNAGIS [Suspect]
     Indication: PREMATURE BABY
     Route: 030
     Dates: start: 20130227
  5. ZANTAC [Concomitant]
     Indication: GASTROOESOPHAGEAL REFLUX DISEASE
     Route: 048
     Dates: start: 20130116

REACTIONS (3)
  - Apnoea [Recovered/Resolved]
  - Bradycardia [Recovered/Resolved]
  - Dysphagia [Recovered/Resolved]
